APPROVED DRUG PRODUCT: HYDROXYCHLOROQUINE SULFATE
Active Ingredient: HYDROXYCHLOROQUINE SULFATE
Strength: 100MG
Dosage Form/Route: TABLET;ORAL
Application: A213342 | Product #002 | TE Code: AB
Applicant: ACCORD HEALTHCARE INC
Approved: Aug 18, 2021 | RLD: No | RS: No | Type: RX